FAERS Safety Report 6964376-3 (Version None)
Quarter: 2010Q3

REPORT INFORMATION
  Report Type: 
  Country: None (occurrence: None)
  Receive Date: 20100903
  Receipt Date: 20100902
  Transmission Date: 20110219
  Serious: Yes (Other)
  Sender: FDA-Public Use
  Company Number: US-ASTRAZENECA-2007UW09459

PATIENT
  Age: 467 Month
  Sex: Female
  Weight: 131.5 kg

DRUGS (49)
  1. SEROQUEL [Suspect]
     Indication: ANXIETY
     Dosage: 25 MG-100 MG
     Route: 048
     Dates: start: 20020415
  2. SEROQUEL [Suspect]
     Indication: DEPRESSION
     Dosage: 25 MG-100 MG
     Route: 048
     Dates: start: 20020415
  3. SEROQUEL [Suspect]
     Route: 048
     Dates: start: 20020426, end: 20020725
  4. SEROQUEL [Suspect]
     Route: 048
     Dates: start: 20020426, end: 20020725
  5. ZYPREXA [Suspect]
     Indication: HALLUCINATION, AUDITORY
     Route: 065
     Dates: start: 20010301, end: 20020401
  6. ZYPREXA [Suspect]
     Route: 065
     Dates: start: 20010301, end: 20020401
  7. ZYPREXA [Suspect]
     Route: 065
     Dates: start: 20010301, end: 20020401
  8. ZYPREXA [Suspect]
     Dosage: 5 MG- 100 MG
     Route: 048
     Dates: start: 20010313, end: 20020415
  9. RISPERDAL [Suspect]
     Indication: PSYCHOTIC DISORDER
     Route: 048
     Dates: start: 20000424
  10. RISPERDAL [Suspect]
     Indication: ANXIETY
     Route: 048
     Dates: start: 20000424
  11. RISPERDAL [Suspect]
     Indication: DEPRESSION
     Route: 048
     Dates: start: 20000424
  12. RISPERDAL [Suspect]
     Route: 065
     Dates: start: 20000401, end: 20000801
  13. RISPERDAL [Suspect]
     Route: 065
     Dates: start: 20000401, end: 20000801
  14. RISPERDAL [Suspect]
     Route: 065
     Dates: start: 20000401, end: 20000801
  15. GEODON [Concomitant]
     Dates: start: 20061114
  16. GEODON [Concomitant]
     Dates: start: 20040801, end: 20070701
  17. CLONAZEPAM [Concomitant]
  18. METHOCARBAMOL [Concomitant]
  19. ALBUTEROL [Concomitant]
  20. PAXIL [Concomitant]
  21. BUSPIRONE HCL [Concomitant]
  22. METFORMIN [Concomitant]
  23. FLUVOXAMINE MALEATE [Concomitant]
  24. GLIPIZIDE [Concomitant]
  25. PAROXETINE HCL [Concomitant]
  26. HYDROCODONE [Concomitant]
  27. PROPRANOLOL [Concomitant]
  28. CITALOPRAM HYDROBROMIDE [Concomitant]
  29. MIRAPEX [Concomitant]
  30. TRAMADOL HCL [Concomitant]
  31. GABAPENTIN [Concomitant]
  32. LEVOTHYROXINE [Concomitant]
  33. LYRICA [Concomitant]
  34. HUMULIN R [Concomitant]
  35. AVANDIA [Concomitant]
  36. AMOXCIL [Concomitant]
  37. ADVAIR DISKUS 100/50 [Concomitant]
  38. BECONASE [Concomitant]
  39. BUPROPION HCL [Concomitant]
  40. CELEXA [Concomitant]
  41. INSULIN GLARGINE [Concomitant]
  42. LEVAQUIN [Concomitant]
  43. NAPROXEN [Concomitant]
  44. PREDNISONE [Concomitant]
  45. WELLBUTRIN [Concomitant]
  46. KLONOPIN [Concomitant]
  47. PONDIMIN [Concomitant]
     Indication: WEIGHT CONTROL
     Dates: start: 19960101
  48. IONAMIN [Concomitant]
     Indication: WEIGHT CONTROL
     Dates: start: 19960101
  49. LORAZEPAM [Concomitant]

REACTIONS (7)
  - BLOOD TRIGLYCERIDES INCREASED [None]
  - DIABETES MELLITUS INADEQUATE CONTROL [None]
  - DIABETIC KETOACIDOSIS [None]
  - HYPOTHYROIDISM [None]
  - NEUROPATHY PERIPHERAL [None]
  - SLEEP APNOEA SYNDROME [None]
  - TYPE 2 DIABETES MELLITUS [None]
